FAERS Safety Report 8961900 (Version 2)
Quarter: 2013Q1

REPORT INFORMATION
  Report Type: Spontaneous
  Country: US (occurrence: US)
  Receive Date: 20121212
  Receipt Date: 20130226
  Transmission Date: 20140127
  Serious: No
  Sender: FDA-Public Use
  Company Number: US-ASTRAZENECA-2012SE90608

PATIENT
  Age: 63 Year
  Sex: Male
  Weight: 95.3 kg

DRUGS (5)
  1. CRESTOR [Suspect]
     Indication: BLOOD CHOLESTEROL INCREASED
     Route: 048
     Dates: start: 2009
  2. CRESTOR [Suspect]
     Indication: BLOOD CHOLESTEROL INCREASED
     Dosage: IN MORNING
     Route: 048
  3. LISINOPRIL [Suspect]
     Indication: HYPERTENSION
     Route: 048
     Dates: start: 2012
  4. INDOMETHICIN [Concomitant]
     Indication: ANKYLOSING SPONDYLITIS
  5. MISOPROSTOL [Concomitant]
     Indication: ABDOMINAL DISCOMFORT

REACTIONS (2)
  - Dyspepsia [Unknown]
  - Hypertension [Unknown]
